FAERS Safety Report 5591868-4 (Version None)
Quarter: 2008Q1

REPORT INFORMATION
  Report Type: 
  Country: None (occurrence: None)
  Receive Date: 20080115
  Receipt Date: 20080107
  Transmission Date: 20080703
  Serious: Yes (Other)
  Sender: FDA-Public Use
  Company Number: D0053781B

PATIENT
  Age: 37 Year
  Sex: Female
  Weight: 49 kg

DRUGS (2)
  1. SUMATRIPTAN SUCCINATE [Suspect]
     Indication: MIGRAINE
     Dosage: 50MG WEEKLY
     Route: 048
     Dates: start: 20070305, end: 20070628
  2. PARACETAMOL [Concomitant]
     Indication: MIGRAINE
     Route: 065

REACTIONS (1)
  - PREMATURE BABY [None]
